FAERS Safety Report 8458191-1 (Version None)
Quarter: 2012Q2

REPORT INFORMATION
  Report Type: 
  Country: None (occurrence: None)
  Receive Date: 20120622
  Receipt Date: 20120620
  Transmission Date: 20120825
  Serious: No
  Sender: FDA-Public Use
  Company Number: US-BAYER-2012-061530

PATIENT
  Age: 87 Year
  Sex: Female
  Weight: 81.633 kg

DRUGS (12)
  1. VITAMIN B3 [Concomitant]
  2. BENICAR [Concomitant]
  3. ATENOLOL [Concomitant]
  4. NORVASC [Concomitant]
  5. CERIVASTATIN [Concomitant]
  6. MULTI-VITAMINS [Concomitant]
  7. ALEVE (CAPLET) [Suspect]
     Indication: ARTHRITIS
     Dosage: 1 DF, ONCE
     Route: 048
     Dates: start: 20120501, end: 20120501
  8. VITAMIN B-12 [Concomitant]
  9. FUROSEMIDE [Concomitant]
  10. COD LIVER OIL [Concomitant]
  11. CALTRATE + D [Concomitant]
  12. SYNTHROID [Concomitant]

REACTIONS (1)
  - ARTHRALGIA [None]
